FAERS Safety Report 24546726 (Version 2)
Quarter: 2024Q4

REPORT INFORMATION
  Report Type: Report from Study
  Country: CA (occurrence: CA)
  Receive Date: 20241024
  Receipt Date: 20241031
  Transmission Date: 20250114
  Serious: Yes (Hospitalization)
  Sender: SAMSUNG BIOEPIS
  Company Number: CA-SAMSUNG BIOEPIS-SB-2024-31535

PATIENT
  Age: 69 Year
  Sex: Male

DRUGS (1)
  1. RENFLEXIS [Suspect]
     Active Substance: INFLIXIMAB-ABDA
     Indication: Sarcoidosis
     Route: 042
     Dates: start: 20241007

REACTIONS (6)
  - Dyspnoea [Unknown]
  - Chest discomfort [Unknown]
  - Limb discomfort [Unknown]
  - Pneumonia [Unknown]
  - Haematological infection [Unknown]
  - Off label use [Unknown]

NARRATIVE: CASE EVENT DATE: 20241013
